FAERS Safety Report 15632032 (Version 2)
Quarter: 2018Q4

REPORT INFORMATION
  Report Type: Spontaneous
  Country: FR (occurrence: FR)
  Receive Date: 20181119
  Receipt Date: 20181129
  Transmission Date: 20190205
  Serious: Yes (Hospitalization)
  Sender: FDA-Public Use
  Company Number: FR-009507513-1811FRA006692

PATIENT

DRUGS (1)
  1. BRIDION [Suspect]
     Active Substance: SUGAMMADEX
     Dosage: UNK
     Route: 042
     Dates: start: 2018

REACTIONS (3)
  - Pulmonary arterial pressure increased [Unknown]
  - Premature recovery from anaesthesia [Unknown]
  - Bronchospasm [Unknown]

NARRATIVE: CASE EVENT DATE: 2018
